FAERS Safety Report 7517184-9 (Version None)
Quarter: 2011Q2

REPORT INFORMATION
  Report Type: 
  Country: None (occurrence: None)
  Receive Date: 20110601
  Receipt Date: 20110531
  Transmission Date: 20111010
  Serious: Yes (Hospitalization, Other)
  Sender: FDA-Public Use
  Company Number: US-CEPHALON-2010005210

PATIENT
  Sex: Female
  Weight: 49 kg

DRUGS (5)
  1. KAPIDEX [Concomitant]
     Dates: start: 20100301
  2. VITAMIN D [Concomitant]
     Dates: start: 20090101
  3. CYMBALTA [Concomitant]
     Dates: start: 20080101
  4. TREANDA [Suspect]
     Indication: NON-HODGKIN'S LYMPHOMA
     Route: 042
     Dates: start: 20100101, end: 20100824
  5. TOPAMAX [Concomitant]

REACTIONS (4)
  - NEUROPATHY PERIPHERAL [None]
  - BLOOD COUNT ABNORMAL [None]
  - PAIN IN EXTREMITY [None]
  - MUSCLE SPASMS [None]
